FAERS Safety Report 4972159-9 (Version None)
Quarter: 2006Q2

REPORT INFORMATION
  Report Type: 
  Country: None (occurrence: None)
  Receive Date: 20060413
  Receipt Date: 20060323
  Transmission Date: 20061013
  Serious: Yes (Hospitalization)
  Sender: FDA-Public Use
  Company Number: GB-BRISTOL-MYERS SQUIBB COMPANY-13325303

PATIENT
  Age: 61 Year
  Sex: Male

DRUGS (16)
  1. ORENCIA [Suspect]
     Indication: RHEUMATOID ARTHRITIS
     Route: 042
     Dates: start: 20051114
  2. PREDNISOLONE [Concomitant]
  3. METHOTREXATE [Concomitant]
  4. CYCLOSPORINE [Concomitant]
  5. OMEPRAZOLE [Concomitant]
  6. QUININE [Concomitant]
  7. TRAMADOL [Concomitant]
  8. FOLIC ACID [Concomitant]
  9. NITRAZEPAM [Concomitant]
  10. CO-CODAMOL [Concomitant]
     Dosage: DOSAGE FORM = 30/500 MG
  11. CELECOXIB [Concomitant]
  12. CALCICHEW D3 [Concomitant]
  13. ALENDRONATE SODIUM [Concomitant]
  14. BENDROFLUMETHIAZIDE [Concomitant]
  15. CHLORPHENAMINE [Concomitant]
  16. FLUOXETINE HCL [Concomitant]

REACTIONS (1)
  - LOWER RESPIRATORY TRACT INFECTION [None]
